FAERS Safety Report 18323363 (Version 1)
Quarter: 2020Q3

REPORT INFORMATION
  Report Type: Spontaneous
  Country: US (occurrence: US)
  Receive Date: 20200928
  Receipt Date: 20200928
  Transmission Date: 20201103
  Serious: No
  Sender: FDA-Public Use
  Company Number: US-INCYTE CORPORATION-2020IN009270

PATIENT

DRUGS (1)
  1. JAKAFI [Suspect]
     Active Substance: RUXOLITINIB
     Indication: GRAFT VERSUS HOST DISEASE
     Dosage: 0.5 TABLET (HALF A PILL)
     Route: 048

REACTIONS (4)
  - Therapeutic response unexpected [Unknown]
  - Product use issue [Unknown]
  - Off label use [Unknown]
  - Wrong technique in product usage process [Unknown]
